FAERS Safety Report 19365418 (Version 1)
Quarter: 2021Q2

REPORT INFORMATION
  Report Type: Spontaneous
  Country: US (occurrence: US)
  Receive Date: 20210603
  Receipt Date: 20210603
  Transmission Date: 20210717
  Serious: No
  Sender: FDA-Public Use
  Company Number: None

PATIENT
  Age: 6 Year
  Sex: Male
  Weight: 18.9 kg

DRUGS (1)
  1. PENTAMIDINE INJECTABLE [Suspect]
     Active Substance: PENTAMIDINE
     Indication: PROPHYLACTIC CHEMOTHERAPY
     Dosage: ?          OTHER FREQUENCY:EVERY 4 WEEKS;?
     Route: 040
     Dates: start: 20201027, end: 20210601

REACTIONS (5)
  - Rash erythematous [None]
  - Pruritus [None]
  - Urticaria [None]
  - Cough [None]
  - Erythema [None]

NARRATIVE: CASE EVENT DATE: 20210601
